FAERS Safety Report 5958508-3 (Version None)
Quarter: 2008Q4

REPORT INFORMATION
  Report Type: 
  Country: None (occurrence: None)
  Receive Date: 20081119
  Receipt Date: 20081110
  Transmission Date: 20090506
  Serious: Yes (Hospitalization)
  Sender: FDA-Public Use
  Company Number: PHHY2008GB28532

PATIENT
  Sex: Female

DRUGS (5)
  1. CYCLOSPORINE [Suspect]
  2. CYCLOPHOSPHAMIDE [Suspect]
     Dosage: UNK
     Dates: start: 20081009, end: 20081012
  3. IMMUNE GLOBULIN NOS [Suspect]
  4. KEPIVANCE [Suspect]
     Indication: AUTOIMMUNE DISORDER
     Dosage: 60 UG/KG, QD
     Dates: start: 20081010
  5. TREOSULFAN [Concomitant]

REACTIONS (3)
  - CONVULSION [None]
  - IMMUNE SYSTEM DISORDER [None]
  - RASH [None]
